FAERS Safety Report 14730005 (Version 6)
Quarter: 2022Q3

REPORT INFORMATION
  Report Type: Spontaneous
  Country: US (occurrence: US)
  Receive Date: 20180406
  Receipt Date: 20220722
  Transmission Date: 20221027
  Serious: Yes (Hospitalization, Other)
  Sender: FDA-Public Use
  Company Number: US-PFIZER INC-2018137214

PATIENT
  Age: 68 Year
  Sex: Male
  Weight: 121.1 kg

DRUGS (105)
  1. PREVACID [Suspect]
     Active Substance: LANSOPRAZOLE
     Dosage: UNK
     Dates: start: 200301, end: 201710
  2. PROTONIX [Suspect]
     Active Substance: PANTOPRAZOLE SODIUM
     Dosage: UNK
     Dates: start: 200301, end: 201710
  3. NEXIUM [Suspect]
     Active Substance: ESOMEPRAZOLE MAGNESIUM
     Dosage: UNK
     Route: 048
     Dates: start: 200301, end: 201710
  4. NEXIUM 24HR [Suspect]
     Active Substance: ESOMEPRAZOLE MAGNESIUM
     Dosage: UNK
     Route: 048
     Dates: start: 200301, end: 201710
  5. DEXILANT [Suspect]
     Active Substance: DEXLANSOPRAZOLE
     Dosage: UNK
     Dates: start: 200301, end: 201710
  6. PREVACID 24 HR [Suspect]
     Active Substance: LANSOPRAZOLE
     Dosage: UNK
     Dates: start: 200301, end: 201710
  7. PRILOSEC [Suspect]
     Active Substance: OMEPRAZOLE MAGNESIUM
     Indication: Gastrooesophageal reflux disease
     Dosage: UNK
     Route: 048
     Dates: start: 200301, end: 201710
  8. PRILOSEC [Suspect]
     Active Substance: OMEPRAZOLE MAGNESIUM
     Dosage: UNK
     Route: 065
     Dates: start: 20070202, end: 20070719
  9. PRILOSEC [Suspect]
     Active Substance: OMEPRAZOLE MAGNESIUM
     Dosage: UNK
     Route: 065
     Dates: start: 20070919, end: 20090828
  10. PRILOSEC [Suspect]
     Active Substance: OMEPRAZOLE MAGNESIUM
     Dosage: UNK
     Route: 065
     Dates: start: 20150725
  11. PRILOSEC OTC [Suspect]
     Active Substance: OMEPRAZOLE MAGNESIUM
     Indication: Gastrooesophageal reflux disease
     Dosage: UNK
     Route: 048
     Dates: start: 200301, end: 201710
  12. PRILOSEC OTC [Suspect]
     Active Substance: OMEPRAZOLE MAGNESIUM
     Dosage: 20 MG, DAILY
     Dates: start: 2009, end: 2015
  13. OMEPRAZOLE [Suspect]
     Active Substance: OMEPRAZOLE
     Indication: Gastrooesophageal reflux disease
     Dosage: 20 MG, DAILY
     Dates: start: 20070202, end: 20070719
  14. OMEPRAZOLE [Suspect]
     Active Substance: OMEPRAZOLE
     Dosage: 20 MG, DAILY
     Dates: start: 20070919, end: 20090828
  15. OMEPRAZOLE [Suspect]
     Active Substance: OMEPRAZOLE
     Dosage: 20 MG, DAILY
     Dates: start: 20150725
  16. AZITHROMYCIN [Concomitant]
     Active Substance: AZITHROMYCIN
     Indication: Infection
     Dosage: UNK
     Dates: start: 20080129, end: 20080203
  17. AZITHROMYCIN [Concomitant]
     Active Substance: AZITHROMYCIN
     Dosage: UNK
     Dates: start: 20080424, end: 20120618
  18. AZITHROMYCIN [Concomitant]
     Active Substance: AZITHROMYCIN
     Dosage: UNK
     Dates: start: 20090102, end: 20090108
  19. AZITHROMYCIN [Concomitant]
     Active Substance: AZITHROMYCIN
     Dosage: UNK
     Dates: start: 20111122, end: 20111128
  20. AZITHROMYCIN [Concomitant]
     Active Substance: AZITHROMYCIN
     Dosage: UNK
     Dates: start: 20130510, end: 20130515
  21. AZITHROMYCIN [Concomitant]
     Active Substance: AZITHROMYCIN
     Dosage: UNK
     Dates: start: 20161108, end: 20161113
  22. SIMVASTATIN [Concomitant]
     Active Substance: SIMVASTATIN
     Indication: Blood cholesterol abnormal
     Dosage: UNK
     Dates: start: 20080111, end: 20080502
  23. SIMVASTATIN [Concomitant]
     Active Substance: SIMVASTATIN
     Dosage: UNK
     Dates: start: 20080825, end: 20081125
  24. SIMVASTATIN [Concomitant]
     Active Substance: SIMVASTATIN
     Dosage: UNK
     Dates: start: 20081107, end: 20100526
  25. SIMVASTATIN [Concomitant]
     Active Substance: SIMVASTATIN
     Dosage: UNK
     Dates: start: 20100824, end: 20101124
  26. SIMVASTATIN [Concomitant]
     Active Substance: SIMVASTATIN
     Dosage: UNK
     Dates: start: 20101030
  27. SIMVASTATIN [Concomitant]
     Active Substance: SIMVASTATIN
     Dosage: UNK
     Dates: start: 20110206, end: 20110520
  28. SIMVASTATIN [Concomitant]
     Active Substance: SIMVASTATIN
     Dosage: UNK
     Dates: start: 20110727, end: 20120517
  29. SIMVASTATIN [Concomitant]
     Active Substance: SIMVASTATIN
     Dosage: UNK
     Dates: start: 20120723, end: 20121023
  30. SIMVASTATIN [Concomitant]
     Active Substance: SIMVASTATIN
     Dosage: UNK
     Dates: start: 20121028, end: 20130103
  31. SIMVASTATIN [Concomitant]
     Active Substance: SIMVASTATIN
     Dosage: UNK
     Dates: start: 20130103, end: 20131206
  32. SIMVASTATIN [Concomitant]
     Active Substance: SIMVASTATIN
     Dosage: UNK
     Dates: start: 20140324, end: 20140828
  33. SIMVASTATIN [Concomitant]
     Active Substance: SIMVASTATIN
     Dosage: UNK
     Dates: start: 20150324, end: 20150624
  34. SIMVASTATIN [Concomitant]
     Active Substance: SIMVASTATIN
     Dosage: UNK
     Dates: start: 20150619, end: 20171105
  35. SIMVASTATIN [Concomitant]
     Active Substance: SIMVASTATIN
     Dosage: UNK
     Dates: start: 20170503, end: 20170517
  36. CLOPIDOGREL [Concomitant]
     Active Substance: CLOPIDOGREL BISULFATE
     Indication: Thrombosis prophylaxis
     Dosage: UNK
     Dates: start: 20120601, end: 20120616
  37. CLOPIDOGREL [Concomitant]
     Active Substance: CLOPIDOGREL BISULFATE
     Dosage: UNK
     Dates: start: 20120717, end: 20121017
  38. CLOPIDOGREL [Concomitant]
     Active Substance: CLOPIDOGREL BISULFATE
     Dosage: UNK
     Dates: start: 20121011, end: 20130321
  39. CLOPIDOGREL [Concomitant]
     Active Substance: CLOPIDOGREL BISULFATE
     Dosage: UNK
     Dates: start: 20130723, end: 20130823
  40. CLOPIDOGREL [Concomitant]
     Active Substance: CLOPIDOGREL BISULFATE
     Dosage: UNK
     Dates: start: 20130812, end: 20131108
  41. CLOPIDOGREL [Concomitant]
     Active Substance: CLOPIDOGREL BISULFATE
     Dosage: UNK
     Dates: start: 20140127, end: 20171030
  42. DOXYCYCLINE [Concomitant]
     Active Substance: DOXYCYCLINE
     Indication: Infection
     Dosage: UNK
     Dates: start: 20120209, end: 20120229
  43. DOXYCYCLINE [Concomitant]
     Active Substance: DOXYCYCLINE
     Indication: Cellulitis
     Dosage: UNK
     Dates: start: 20130325, end: 20130414
  44. DOXYCYCLINE [Concomitant]
     Active Substance: DOXYCYCLINE
     Dosage: UNK
     Dates: start: 20150324, end: 20150413
  45. LEVOFLOXACIN [Concomitant]
     Active Substance: LEVOFLOXACIN
     Indication: Infection
     Dosage: UNK
     Dates: start: 20110713, end: 20110718
  46. LEVOFLOXACIN [Concomitant]
     Active Substance: LEVOFLOXACIN
     Dosage: UNK
     Dates: start: 20111106, end: 20111116
  47. LEVOFLOXACIN [Concomitant]
     Active Substance: LEVOFLOXACIN
     Dosage: UNK
     Dates: start: 20111203, end: 20111217
  48. LEVOFLOXACIN [Concomitant]
     Active Substance: LEVOFLOXACIN
     Dosage: UNK
     Dates: start: 20120515, end: 20120529
  49. LEVOFLOXACIN [Concomitant]
     Active Substance: LEVOFLOXACIN
     Dosage: UNK
     Dates: start: 20131031, end: 20131110
  50. SULFAMETHOXAZOLE\TRIMETHOPRIM [Concomitant]
     Active Substance: SULFAMETHOXAZOLE\TRIMETHOPRIM
     Indication: Infection
     Dosage: UNK
     Dates: start: 20130215, end: 20130225
  51. SULFAMETHOXAZOLE\TRIMETHOPRIM [Concomitant]
     Active Substance: SULFAMETHOXAZOLE\TRIMETHOPRIM
     Dosage: UNK
     Dates: start: 20131031, end: 20131114
  52. SULFAMETHOXAZOLE\TRIMETHOPRIM [Concomitant]
     Active Substance: SULFAMETHOXAZOLE\TRIMETHOPRIM
     Dosage: UNK
     Dates: start: 20141230, end: 20150114
  53. SULFAMETHOXAZOLE\TRIMETHOPRIM [Concomitant]
     Active Substance: SULFAMETHOXAZOLE\TRIMETHOPRIM
     Dosage: UNK
     Dates: start: 20150309, end: 20150316
  54. SULFAMETHOXAZOLE\TRIMETHOPRIM [Concomitant]
     Active Substance: SULFAMETHOXAZOLE\TRIMETHOPRIM
     Dosage: UNK
     Dates: start: 20160712, end: 20160722
  55. SULFAMETHOXAZOLE\TRIMETHOPRIM [Concomitant]
     Active Substance: SULFAMETHOXAZOLE\TRIMETHOPRIM
     Dosage: UNK
     Dates: start: 20161011, end: 20170703
  56. LISINOPRIL [Concomitant]
     Active Substance: LISINOPRIL
     Indication: Hypertension
     Dosage: UNK
     Dates: start: 20080627, end: 20080927
  57. LISINOPRIL [Concomitant]
     Active Substance: LISINOPRIL
     Dosage: UNK
     Dates: start: 20081224, end: 20090324
  58. LISINOPRIL [Concomitant]
     Active Substance: LISINOPRIL
     Dosage: UNK
     Dates: start: 20090303, end: 20090825
  59. LISINOPRIL [Concomitant]
     Active Substance: LISINOPRIL
     Dosage: UNK
     Dates: start: 20090827, end: 20091127
  60. LISINOPRIL [Concomitant]
     Active Substance: LISINOPRIL
     Dosage: UNK
     Dates: start: 20091203, end: 20120606
  61. LISINOPRIL [Concomitant]
     Active Substance: LISINOPRIL
     Dosage: UNK
     Dates: start: 20120831
  62. LISINOPRIL [Concomitant]
     Active Substance: LISINOPRIL
     Dosage: UNK
     Dates: start: 20121217, end: 20131108
  63. LISINOPRIL [Concomitant]
     Active Substance: LISINOPRIL
     Dosage: UNK
     Dates: start: 20140219, end: 20140728
  64. LISINOPRIL [Concomitant]
     Active Substance: LISINOPRIL
     Dosage: UNK
     Dates: start: 20140726, end: 20171212
  65. FUROSEMIDE [Concomitant]
     Active Substance: FUROSEMIDE
     Indication: Cardiac failure congestive
     Dosage: UNK
     Dates: start: 20120515, end: 20120615
  66. FUROSEMIDE [Concomitant]
     Active Substance: FUROSEMIDE
     Dosage: UNK
     Dates: start: 20120618, end: 20120718
  67. FUROSEMIDE [Concomitant]
     Active Substance: FUROSEMIDE
     Dosage: UNK
     Dates: start: 20120702, end: 20120802
  68. FUROSEMIDE [Concomitant]
     Active Substance: FUROSEMIDE
     Dosage: UNK
     Dates: start: 20130604, end: 20130801
  69. FUROSEMIDE [Concomitant]
     Active Substance: FUROSEMIDE
     Dosage: UNK
     Dates: start: 20130816, end: 20131108
  70. FUROSEMIDE [Concomitant]
     Active Substance: FUROSEMIDE
     Dosage: UNK
     Dates: start: 20140121, end: 20140505
  71. FUROSEMIDE [Concomitant]
     Active Substance: FUROSEMIDE
     Dosage: UNK
     Dates: start: 20140701, end: 20141212
  72. FUROSEMIDE [Concomitant]
     Active Substance: FUROSEMIDE
     Dosage: UNK
     Dates: start: 20150304, end: 20150604
  73. FUROSEMIDE [Concomitant]
     Active Substance: FUROSEMIDE
     Dosage: UNK
     Dates: start: 20150601, end: 20150901
  74. TORSEMIDE [Concomitant]
     Active Substance: TORSEMIDE
     Indication: Cardiac failure congestive
     Dosage: UNK
     Dates: start: 20150324, end: 20150423
  75. TORSEMIDE [Concomitant]
     Active Substance: TORSEMIDE
     Dosage: UNK
     Dates: start: 20150423, end: 20150523
  76. TORSEMIDE [Concomitant]
     Active Substance: TORSEMIDE
     Dosage: UNK
     Dates: start: 20150608, end: 20150908
  77. TORSEMIDE [Concomitant]
     Active Substance: TORSEMIDE
     Dosage: UNK
     Dates: start: 20150914, end: 20161116
  78. ACETAMINOPHEN [Concomitant]
     Active Substance: ACETAMINOPHEN
     Indication: Pain
     Dosage: UNK, WHEN NEEDED
     Dates: start: 2008, end: 2017
  79. VITAMIN B12 [Concomitant]
     Active Substance: CYANOCOBALAMIN
     Indication: Anaemia
     Dosage: UNK
     Dates: start: 2013
  80. VITAMIN D3 [Concomitant]
     Active Substance: CHOLECALCIFEROL
     Indication: Vitamin supplementation
     Dosage: UNK
  81. PEPCID COMPLETE [Concomitant]
     Active Substance: CALCIUM CARBONATE\FAMOTIDINE\MAGNESIUM HYDROXIDE
     Dosage: UNK UNK, AS NEEDED
  82. AMBIEN [Concomitant]
     Active Substance: ZOLPIDEM TARTRATE
     Dosage: UNK
  83. GABAPENTIN [Concomitant]
     Active Substance: GABAPENTIN
     Dosage: UNK
  84. ATENOLOL [Concomitant]
     Active Substance: ATENOLOL
     Dosage: UNK
  85. METANX [Concomitant]
     Active Substance: LEVOMEFOLATE CALCIUM\METHYLCOBALAMIN\PYRIDOXAL PHOSPHATE ANHYDROUS
     Dosage: UNK
  86. REQUIP [Concomitant]
     Active Substance: ROPINIROLE HYDROCHLORIDE
     Dosage: UNK
  87. ZYRTEC [Concomitant]
     Active Substance: CETIRIZINE HYDROCHLORIDE
     Dosage: UNK
  88. CYCLOBENZAPRINE HYDROCHLORIDE [Concomitant]
     Active Substance: CYCLOBENZAPRINE HYDROCHLORIDE
     Dosage: UNK
  89. NORVASC [Concomitant]
     Active Substance: AMLODIPINE BESYLATE
     Dosage: UNK
  90. METFORMIN HYDROCHLORIDE [Concomitant]
     Active Substance: METFORMIN HYDROCHLORIDE
     Dosage: UNK
  91. NYSTATIN [Concomitant]
     Active Substance: NYSTATIN
     Dosage: UNK
  92. SPIRIVA [Concomitant]
     Active Substance: TIOTROPIUM BROMIDE MONOHYDRATE
     Dosage: UNK
  93. LYRICA [Concomitant]
     Active Substance: PREGABALIN
     Dosage: UNK
  94. LEVAQUIN [Concomitant]
     Active Substance: LEVOFLOXACIN
     Dosage: UNK
  95. HYDROCODONE\PHENYLTOLOXAMINE [Concomitant]
     Active Substance: HYDROCODONE\PHENYLTOLOXAMINE
     Dosage: UNK
  96. PLAVIX [Concomitant]
     Active Substance: CLOPIDOGREL BISULFATE
     Dosage: UNK
  97. CEPHALEXIN [Concomitant]
     Active Substance: CEPHALEXIN
     Dosage: UNK
  98. ONGLYZA [Concomitant]
     Active Substance: SAXAGLIPTIN HYDROCHLORIDE
     Dosage: UNK
  99. FENOFIBRATE [Concomitant]
     Active Substance: FENOFIBRATE
     Dosage: UNK
  100. LANTUS SOLOSTAR [Concomitant]
     Active Substance: INSULIN GLARGINE
     Dosage: UNK
  101. ADVAIR DISKUS [Concomitant]
     Active Substance: FLUTICASONE PROPIONATE\SALMETEROL XINAFOATE
     Dosage: UNK
  102. NITROGLYCERIN [Concomitant]
     Active Substance: NITROGLYCERIN
     Dosage: UNK
  103. CITALOPRAM [Concomitant]
     Active Substance: CITALOPRAM HYDROBROMIDE
     Dosage: UNK
  104. FLUTICASONE PROPIONATE [Concomitant]
     Active Substance: FLUTICASONE PROPIONATE
     Dosage: UNK
  105. OFLOXACIN [Concomitant]
     Active Substance: OFLOXACIN
     Dosage: UNK

REACTIONS (4)
  - Acute kidney injury [Not Recovered/Not Resolved]
  - Chronic kidney disease [Not Recovered/Not Resolved]
  - Renal failure [Unknown]
  - Gastrooesophageal reflux disease [Not Recovered/Not Resolved]

NARRATIVE: CASE EVENT DATE: 20120901
